FAERS Safety Report 8159530-1 (Version None)
Quarter: 2012Q1

REPORT INFORMATION
  Report Type: 
  Country: None (occurrence: None)
  Receive Date: 20120223
  Receipt Date: 20120213
  Transmission Date: 20120608
  Serious: Yes (Hospitalization)
  Sender: FDA-Public Use
  Company Number: US-JNJFOC-20120207154

PATIENT
  Sex: Male

DRUGS (7)
  1. LIPITOR [Concomitant]
  2. XARELTO [Suspect]
     Indication: ATRIAL FIBRILLATION
     Dosage: 2 MONTHS DURATION
     Route: 065
  3. HYDROCHLOROTHIAZIDE [Concomitant]
  4. LISINOPRIL [Concomitant]
  5. AMLODIPINE [Concomitant]
  6. METOPROLOL [Concomitant]
  7. FOSAMAX [Concomitant]

REACTIONS (4)
  - HAEMATOCHEZIA [None]
  - SYNCOPE [None]
  - FULL BLOOD COUNT DECREASED [None]
  - GASTROINTESTINAL HAEMORRHAGE [None]
